FAERS Safety Report 5283858-6 (Version None)
Quarter: 2007Q1

REPORT INFORMATION
  Report Type: 
  Country: None (occurrence: None)
  Receive Date: 20070327
  Receipt Date: 20070314
  Transmission Date: 20070707
  Serious: Yes (Hospitalization)
  Sender: FDA-Public Use
  Company Number: WAES 0703USA03192

PATIENT
  Age: 78 Year
  Sex: Male

DRUGS (5)
  1. ZETIA [Suspect]
     Indication: BLOOD CHOLESTEROL INCREASED
     Dosage: 10 MG/UNK/PO
     Route: 048
     Dates: start: 20000101, end: 20070115
  2. LIPITOR [Suspect]
     Indication: BLOOD CHOLESTEROL INCREASED
     Dosage: 40 MG/DAILY/UNK
     Dates: start: 20000101, end: 20070115
  3. WARFARIN SODIUM [Suspect]
     Dosage: 7.14 MG/DAILY/UNK
     Dates: start: 20030401
  4. LANTUS [Suspect]
     Indication: DIABETES MELLITUS
     Dosage: 45 [UNIT] /DAILY/UNK
     Dates: start: 20070115
  5. HUMALOG [Suspect]
     Indication: DIABETES MELLITUS
     Dosage: 45 [UNIT]/DAILY/UNK
     Dates: start: 20040101

REACTIONS (4)
  - DIABETES MELLITUS [None]
  - HAEMORRHAGE [None]
  - MYOPATHY [None]
  - MYOSITIS [None]
